FAERS Safety Report 9827235 (Version 2)
Quarter: 2014Q1

REPORT INFORMATION
  Report Type: Spontaneous
  Country: US (occurrence: US)
  Receive Date: 20140117
  Receipt Date: 20140117
  Transmission Date: 20141002
  Serious: Yes (Death, Other)
  Sender: FDA-Public Use
  Company Number: US-BRISTOL-MYERS SQUIBB COMPANY-19600113

PATIENT
  Age: 76 Year
  Sex: Male
  Weight: 108 kg

DRUGS (9)
  1. YERVOY [Suspect]
     Indication: METASTATIC MALIGNANT MELANOMA
     Dosage: 25SEP13
     Route: 042
     Dates: start: 20130904
  2. STEROIDS [Concomitant]
  3. ALLEGRA [Concomitant]
     Dosage: 1DF: 1 TAB
  4. VITAMIN B12 [Concomitant]
     Dosage: 1DF: 1TAB
  5. VITAMIN D3 [Concomitant]
     Dosage: 1DF: 5000 UNITS
  6. BABY ASPIRIN [Concomitant]
  7. METOPROLOL [Concomitant]
     Route: 048
  8. FAMOTIDINE [Concomitant]
     Route: 042
  9. DEXAMETHASONE [Concomitant]
     Route: 042

REACTIONS (2)
  - Guillain-Barre syndrome [Fatal]
  - Liver function test abnormal [Unknown]
